FAERS Safety Report 22969177 (Version 2)
Quarter: 2023Q4

REPORT INFORMATION
  Report Type: Report from Study
  Country: US (occurrence: US)
  Receive Date: 20230922
  Receipt Date: 20231102
  Transmission Date: 20240110
  Serious: No
  Sender: FDA-Public Use
  Company Number: US-DECIPHERA PHARMACEUTICALS LLC-2023US000593

PATIENT
  Age: 72 Year
  Sex: Female

DRUGS (2)
  1. QINLOCK [Suspect]
     Active Substance: RIPRETINIB
     Indication: Neoplasm malignant
     Dosage: 150 MILLIGRAM, QD
     Route: 048
     Dates: start: 20230514, end: 2023
  2. QINLOCK [Suspect]
     Active Substance: RIPRETINIB
     Dosage: 100 MILLIGRAM, QD
     Route: 048
     Dates: start: 2023

REACTIONS (5)
  - Drug intolerance [Unknown]
  - Dizziness [Unknown]
  - General physical health deterioration [Unknown]
  - Muscle spasms [Not Recovered/Not Resolved]
  - Product use in unapproved indication [Unknown]

NARRATIVE: CASE EVENT DATE: 20230514
